FAERS Safety Report 14411881 (Version 2)
Quarter: 2018Q1

REPORT INFORMATION
  Report Type: Report from Study
  Country: FR (occurrence: FR)
  Receive Date: 20180119
  Receipt Date: 20180208
  Transmission Date: 20180509
  Serious: Yes (Hospitalization, Other)
  Sender: FDA-Public Use
  Company Number: FR-PFIZER INC-2018023389

PATIENT
  Age: 3 Year
  Sex: Male

DRUGS (16)
  1. IDARUBICIN HCL [Suspect]
     Active Substance: IDARUBICIN HYDROCHLORIDE
     Indication: ACUTE LYMPHOCYTIC LEUKAEMIA
     Dosage: 19.2 MG, UNK
     Route: 042
     Dates: start: 20171023, end: 20171114
  2. ERWINASE /00143501/ [Suspect]
     Active Substance: ASPARAGINASE
     Indication: ACUTE LYMPHOCYTIC LEUKAEMIA
     Dosage: UNK
     Route: 042
     Dates: start: 20171026, end: 20171102
  3. CYCLOPHOSPHAMIDE. [Suspect]
     Active Substance: CYCLOPHOSPHAMIDE
     Indication: ACUTE LYMPHOCYTIC LEUKAEMIA
     Dosage: 640 MG, UNK
     Route: 042
     Dates: start: 20171124, end: 20171124
  4. DEXAMETHASONE. [Concomitant]
     Active Substance: DEXAMETHASONE
     Indication: HYPERSENSITIVITY
  5. ZOPHREN /00955301/ [Concomitant]
     Active Substance: ONDANSETRON
     Indication: HYPERSENSITIVITY
  6. CYTARABINE. [Suspect]
     Active Substance: CYTARABINE
     Indication: ACUTE LYMPHOCYTIC LEUKAEMIA
     Dosage: 30 MG, UNK
     Route: 037
     Dates: start: 20171026, end: 20171127
  7. 6-THIOGUANINE [Suspect]
     Active Substance: THIOGUANINE
     Indication: ACUTE LYMPHOCYTIC LEUKAEMIA
     Dosage: 38.4 MG, UNK
     Route: 042
     Dates: start: 20171124
  8. POLARAMINE [Concomitant]
     Active Substance: DEXCHLORPHENIRAMINE MALEATE
     Dosage: UNK
  9. VINCRISTINE SULFATE. [Suspect]
     Active Substance: VINCRISTINE SULFATE
     Indication: ACUTE LYMPHOCYTIC LEUKAEMIA
     Dosage: 1 MG, UNK
     Route: 042
     Dates: start: 20171023, end: 20171114
  10. HYDROCORTISONE. [Suspect]
     Active Substance: HYDROCORTISONE
     Indication: ACUTE LYMPHOCYTIC LEUKAEMIA
     Dosage: 15 MG, UNK
     Route: 037
     Dates: start: 20171026, end: 20171127
  11. POLARAMINE [Concomitant]
     Active Substance: DEXCHLORPHENIRAMINE MALEATE
     Indication: HYPERSENSITIVITY
     Dosage: UNK
  12. DEXAMETHASONE. [Suspect]
     Active Substance: DEXAMETHASONE
     Indication: ACUTE LYMPHOCYTIC LEUKAEMIA
     Dosage: 6.4 MG, UNK
     Route: 048
     Dates: start: 20171023, end: 20171129
  13. CYTARABINE. [Suspect]
     Active Substance: CYTARABINE
     Dosage: 48 MG, UNK
     Route: 042
     Dates: start: 20171127
  14. METHOTREXATE. [Suspect]
     Active Substance: METHOTREXATE
     Indication: ACUTE LYMPHOCYTIC LEUKAEMIA
     Dosage: 12 MG, UNK
     Route: 037
     Dates: start: 20171026, end: 20171127
  15. PRIMPERAN [Concomitant]
     Active Substance: METOCLOPRAMIDE HYDROCHLORIDE
     Indication: VOMITING
  16. ONCASPAR [Suspect]
     Active Substance: PEGASPARGASE
     Indication: ACUTE LYMPHOCYTIC LEUKAEMIA
     Route: 042

REACTIONS (1)
  - Febrile bone marrow aplasia [Not Recovered/Not Resolved]

NARRATIVE: CASE EVENT DATE: 20171204
